FAERS Safety Report 4831335-6 (Version None)
Quarter: 2005Q4

REPORT INFORMATION
  Report Type: 
  Country: None (occurrence: None)
  Receive Date: 20051116
  Receipt Date: 20051116
  Transmission Date: 20060501
  Serious: Yes (Hospitalization)
  Sender: FDA-Public Use
  Company Number: None

PATIENT
  Sex: Female
  Weight: 63.5036 kg

DRUGS (8)
  1. DOCETAXEL 75MG/M2 [Suspect]
     Indication: BREAST CANCER
     Dosage: Q 3 WKS IV
     Route: 042
     Dates: start: 20050915
  2. DOXORUBICIN HCL [Suspect]
     Indication: BREAST CANCER
     Dosage: Q 3 WKS IV
     Route: 042
     Dates: start: 20051006
  3. CYTOXAN [Suspect]
     Indication: BREAST CANCER
     Dosage: Q 3 WKS IV
     Route: 042
     Dates: start: 20051031
  4. BEVACIZUMAB/PLACEBO [Suspect]
     Indication: BREAST CANCER
     Dosage: 7.5MG / M2  Q 3 WKS IV
     Route: 042
     Dates: start: 20050825
  5. BEVACIZUMAB/PLACEBO [Suspect]
     Indication: BREAST CANCER
     Dosage: 7.5MG / M2  Q 3 WKS IV
     Route: 042
     Dates: start: 20050915
  6. BEVACIZUMAB/PLACEBO [Suspect]
     Indication: BREAST CANCER
     Dosage: 7.5MG / M2  Q 3 WKS IV
     Route: 042
     Dates: start: 20051006
  7. BEVACIZUMAB/PLACEBO [Suspect]
     Indication: BREAST CANCER
     Dosage: 7.5MG / M2  Q 3 WKS IV
     Route: 042
     Dates: start: 20051031
  8. NEULASTA [Concomitant]

REACTIONS (7)
  - DIARRHOEA [None]
  - ESCHERICHIA URINARY TRACT INFECTION [None]
  - HEADACHE [None]
  - PHARYNGOLARYNGEAL PAIN [None]
  - PYELONEPHRITIS [None]
  - PYREXIA [None]
  - WHITE BLOOD CELL COUNT DECREASED [None]
